FAERS Safety Report 5870408-6 (Version None)
Quarter: 2008Q3

REPORT INFORMATION
  Report Type: 
  Country: None (occurrence: None)
  Receive Date: 20080904
  Receipt Date: 20080306
  Transmission Date: 20090109
  Serious: Yes (Life-Threatening, Hospitalization)
  Sender: FDA-Public Use
  Company Number: US-BRISTOL-MYERS SQUIBB COMPANY-14057426

PATIENT
  Age: 53 Year
  Sex: Male
  Weight: 142 kg

DRUGS (4)
  1. DEFINITY [Suspect]
     Indication: ECHOCARDIOGRAM
     Dosage: 1 DOSAGE FORM = 2ML + 1ML
     Route: 042
     Dates: start: 20080125, end: 20080125
  2. ZOCOR [Concomitant]
  3. ALLOPURINOL [Concomitant]
  4. COLCHICINE [Concomitant]

REACTIONS (1)
  - CARDIAC ARREST [None]
